FAERS Safety Report 4820481-9 (Version None)
Quarter: 2005Q4

REPORT INFORMATION
  Report Type: 
  Country: None (occurrence: None)
  Receive Date: 20051104
  Receipt Date: 20051026
  Transmission Date: 20060501
  Serious: Yes (Other)
  Sender: FDA-Public Use
  Company Number: PHRM2005FR02851

PATIENT
  Sex: Male

DRUGS (1)
  1. ZOMETA [Suspect]
     Indication: BLADDER CANCER
     Dosage: UNK, UNK
     Route: 042
     Dates: end: 20050801

REACTIONS (3)
  - OSTEONECROSIS [None]
  - SURGERY [None]
  - TOOTH EXTRACTION [None]
